FAERS Safety Report 7392536-9 (Version None)
Quarter: 2011Q2

REPORT INFORMATION
  Report Type: 
  Country: None (occurrence: None)
  Receive Date: 20110404
  Receipt Date: 20110105
  Transmission Date: 20111010
  Serious: No
  Sender: FDA-Public Use
  Company Number: US-BAYER-2011-027873

PATIENT
  Sex: Male
  Weight: 102 kg

DRUGS (1)
  1. ALEVE (CAPLET) [Suspect]
     Indication: PAIN
     Dosage: UNK
     Route: 048
     Dates: start: 20100101

REACTIONS (1)
  - PAIN [None]
